FAERS Safety Report 24108889 (Version 3)
Quarter: 2024Q3

REPORT INFORMATION
  Report Type: Spontaneous
  Country: IT (occurrence: IT)
  Receive Date: 20240718
  Receipt Date: 20240807
  Transmission Date: 20241017
  Serious: Yes (Other)
  Sender: AUROBINDO
  Company Number: IT-AUROBINDO-AUR-APL-2024-034766

PATIENT
  Age: 6 Year
  Sex: Female

DRUGS (18)
  1. EMTRICITABINE\TENOFOVIR DISOPROXIL [Interacting]
     Active Substance: EMTRICITABINE\TENOFOVIR DISOPROXIL
     Indication: HIV infection
     Dosage: UNK (ANTIRETROVIRAL THERAPY (ART))
     Route: 065
  2. IFOSFAMIDE [Suspect]
     Active Substance: IFOSFAMIDE
     Indication: Burkitt^s lymphoma
     Dosage: 800 MILLIGRAM/SQ. METER, CYCLICAL (CYCLE 1)
     Route: 065
  3. DEXAMETHASONE [Suspect]
     Active Substance: DEXAMETHASONE
     Indication: Burkitt^s lymphoma
     Dosage: 10 MILLIGRAM/SQ. METER, CYCLICAL (CYCLE 1)
     Route: 065
  4. DEXAMETHASONE [Suspect]
     Active Substance: DEXAMETHASONE
     Dosage: 10 MILLIGRAM/SQ. METER, CYCLICAL (CYCLE 2)
     Route: 065
  5. DEXAMETHASONE [Suspect]
     Active Substance: DEXAMETHASONE
     Dosage: 20 MILLIGRAM/SQ. METER, CYCLICAL (CYCLE 3)
     Route: 065
  6. METHOTREXATE [Suspect]
     Active Substance: METHOTREXATE
     Indication: Burkitt^s lymphoma
     Dosage: 5 GRAM PER SQUARE METRE, CYCLICAL (CYCLE 1)
     Route: 065
  7. METHOTREXATE [Suspect]
     Active Substance: METHOTREXATE
     Dosage: 5 GRAM PER SQUARE METRE, CYCLICAL (CYCLE 2)
     Route: 065
  8. VINCRISTINE [Suspect]
     Active Substance: VINCRISTINE
     Indication: Burkitt^s lymphoma
     Dosage: 1.5 MILLIGRAM/SQ. METER, CYCLICAL (CYCLE 1)
     Route: 065
  9. VINCRISTINE [Suspect]
     Active Substance: VINCRISTINE
     Dosage: 1.5 MILLIGRAM/SQ. METER, CYCLICAL (CYCLE 2)
     Route: 065
  10. CYTARABINE [Suspect]
     Active Substance: CYTARABINE
     Indication: Burkitt^s lymphoma
     Dosage: 150 MILLIGRAM/SQ. METER, CYCLICAL (CYCLE 1)
     Route: 065
  11. CYTARABINE [Suspect]
     Active Substance: CYTARABINE
     Dosage: 3 GRAM PER SQUARE METRE, CYCLICAL (CYCLE 3)
     Route: 065
  12. ETOPOSIDE [Suspect]
     Active Substance: ETOPOSIDE
     Indication: Burkitt^s lymphoma
     Dosage: 100 MILLIGRAM/SQ. METER, CYCLICAL (CYCLE 1)
     Route: 065
  13. ETOPOSIDE [Suspect]
     Active Substance: ETOPOSIDE
     Dosage: 100 MILLIGRAM/SQ. METER, CYCLICAL (CYCLE 3)
     Route: 065
  14. DAUNORUBICIN [Suspect]
     Active Substance: DAUNORUBICIN
     Indication: Burkitt^s lymphoma
     Dosage: 25 MILLIGRAM/SQ. METER, CYCLICAL (CYCLE 2)
     Route: 065
  15. CYCLOPHOSPHAMIDE [Suspect]
     Active Substance: CYCLOPHOSPHAMIDE
     Indication: Burkitt^s lymphoma
     Dosage: 200 MILLIGRAM/SQ. METER, CYCLICAL (CYCLE 2)
     Route: 065
  16. VINDESINE [Suspect]
     Active Substance: VINDESINE
     Indication: Burkitt^s lymphoma
     Dosage: 3 MILLIGRAM/SQ. METER, CYCLICAL (CYCLE 3)
     Route: 065
  17. RITUXIMAB [Suspect]
     Active Substance: RITUXIMAB
     Indication: Burkitt^s lymphoma
     Dosage: 375 MILLIGRAM/SQ. METER (EACH CHEMOTHERAPY CYCLE WAS PRECEDED WITH RITUXIMAB 375 MG/M2 INFUSION)
     Route: 065
  18. RALTEGRAVIR [Suspect]
     Active Substance: RALTEGRAVIR
     Indication: HIV infection
     Dosage: UNK (ANTIRETROVIRAL THERAPY (ART))
     Route: 065

REACTIONS (2)
  - Neutropenia [Recovered/Resolved]
  - Drug interaction [Recovered/Resolved]
